FAERS Safety Report 23961265 (Version 1)
Quarter: 2024Q2

REPORT INFORMATION
  Report Type: Spontaneous
  Country: GB (occurrence: GB)
  Receive Date: 20240611
  Receipt Date: 20240611
  Transmission Date: 20240717
  Serious: Yes (Other)
  Sender: FDA-Public Use
  Company Number: GB-MHRA-MED-202405311843045990-KSHYT

PATIENT
  Sex: Female

DRUGS (3)
  1. DULOXETINE [Suspect]
     Active Substance: DULOXETINE
     Indication: Fibromyalgia
     Dosage: UNK
     Route: 065
     Dates: start: 20240528
  2. AMLODIPINE [Concomitant]
     Active Substance: AMLODIPINE BESYLATE
     Indication: Hypertension
     Dosage: UNK
     Route: 065
  3. CANDESARTAN [Concomitant]
     Active Substance: CANDESARTAN
     Indication: Hypertension
     Dosage: UNK
     Route: 065

REACTIONS (1)
  - Gastrooesophageal reflux disease [Not Recovered/Not Resolved]

NARRATIVE: CASE EVENT DATE: 20240531
